FAERS Safety Report 4479712-X (Version None)
Quarter: 2004Q3

REPORT INFORMATION
  Report Type: 
  Country: None (occurrence: None)
  Receive Date: 20040923
  Receipt Date: 20040611
  Transmission Date: 20050211
  Serious: No
  Sender: FDA-Public Use
  Company Number: USA040260143

PATIENT
  Age: 75 Year
  Sex: Female

DRUGS (4)
  1. FORTEO [Suspect]
     Indication: OSTEOPOROSIS
     Dosage: 20 UG DAY
     Dates: start: 20030401, end: 20040401
  2. HYDROCHLOROTHIAZIDE [Concomitant]
  3. ZOCOR [Concomitant]
  4. CALCIUM CARBONATE [Concomitant]

REACTIONS (1)
  - URINE CALCIUM INCREASED [None]
